FAERS Safety Report 26086690 (Version 3)
Quarter: 2025Q4

REPORT INFORMATION
  Report Type: Spontaneous
  Country: GB (occurrence: GB)
  Receive Date: 20251125
  Receipt Date: 20251218
  Transmission Date: 20260118
  Serious: Yes (Disabling, Other)
  Sender: JUBILANT
  Company Number: None

PATIENT

DRUGS (5)
  1. OLANZAPINE [Suspect]
     Active Substance: OLANZAPINE
     Indication: Brief psychotic disorder, with postpartum onset
     Dosage: 10 MG, ONCE PER DAY (AT NIGHT)
     Route: 065
     Dates: start: 20250805, end: 20250913
  2. RISPERIDONE [Suspect]
     Active Substance: RISPERIDONE
     Indication: Brief psychotic disorder, with postpartum onset
     Dosage: 4 MG, UNK
     Route: 065
  3. OMEPRAZOLE [Concomitant]
     Active Substance: OMEPRAZOLE
     Indication: Product used for unknown indication
     Dosage: UNK,UNK
     Route: 065
  4. IBUPROFEN [Concomitant]
     Active Substance: IBUPROFEN
     Indication: Arthralgia
     Dosage: UNK,UNK
     Route: 065
  5. CETIRIZINE [Concomitant]
     Active Substance: CETIRIZINE HYDROCHLORIDE
     Indication: Rash
     Dosage: UNK,UNK
     Route: 065

REACTIONS (15)
  - Maternal exposure during breast feeding [Unknown]
  - Sedation complication [Recovered/Resolved]
  - Confusional state [Recovered/Resolved with Sequelae]
  - Bradyphrenia [Not Recovered/Not Resolved]
  - Urticaria [Unknown]
  - Joint swelling [Recovered/Resolved]
  - Muscular weakness [Not Recovered/Not Resolved]
  - Infant sedation [Recovered/Resolved]
  - Amnesia [Recovered/Resolved with Sequelae]
  - Anger [Recovered/Resolved]
  - Joint stiffness [Not Recovered/Not Resolved]
  - Pain [Recovered/Resolved]
  - Arthralgia [Not Recovered/Not Resolved]
  - Rash [Not Recovered/Not Resolved]
  - Bradykinesia [Not Recovered/Not Resolved]

NARRATIVE: CASE EVENT DATE: 20250805
